FAERS Safety Report 25613152 (Version 1)
Quarter: 2025Q3

REPORT INFORMATION
  Report Type: Spontaneous
  Country: US (occurrence: US)
  Receive Date: 20250728
  Receipt Date: 20250728
  Transmission Date: 20251020
  Serious: No
  Sender: SANOFI AVENTIS
  Company Number: US-SA-2025SA215410

PATIENT
  Sex: Female

DRUGS (26)
  1. DUPIXENT [Suspect]
     Active Substance: DUPILUMAB
     Dosage: 300 MG, QOW
     Route: 058
  2. Optase comfort [Concomitant]
  3. ASPIRIN [Concomitant]
     Active Substance: ASPIRIN
  4. CALCIUM CITRATE [Concomitant]
     Active Substance: CALCIUM CITRATE
  5. CLONIDINE HYDROCHLORIDE [Concomitant]
     Active Substance: CLONIDINE HYDROCHLORIDE
  6. CLOPIDOGREL [Concomitant]
     Active Substance: CLOPIDOGREL BISULFATE
  7. CYCLOSPORINE [Concomitant]
     Active Substance: CYCLOSPORINE
  8. CYMBALTA [Concomitant]
     Active Substance: DULOXETINE HYDROCHLORIDE
  9. DOXEPIN [Concomitant]
     Active Substance: DOXEPIN
  10. FAMOTIDINE [Concomitant]
     Active Substance: FAMOTIDINE
  11. FUROSEMIDE [Concomitant]
     Active Substance: FUROSEMIDE
  12. HYDRALAZINE [Concomitant]
     Active Substance: HYDRALAZINE HYDROCHLORIDE
  13. HYDROCODONE [Concomitant]
     Active Substance: HYDROCODONE
  14. ISOSORBIDE [Concomitant]
     Active Substance: ISOSORBIDE
  15. LIPITOR [Concomitant]
     Active Substance: ATORVASTATIN CALCIUM
  16. LUBIPROSTONE [Concomitant]
     Active Substance: LUBIPROSTONE
  17. NORVASC [Concomitant]
     Active Substance: AMLODIPINE BESYLATE
  18. NOVOLOG [Concomitant]
     Active Substance: INSULIN ASPART
  19. OMEPRAZOLE [Concomitant]
     Active Substance: OMEPRAZOLE
  20. PROLIA [Concomitant]
     Active Substance: DENOSUMAB
  21. SYNTHROID [Concomitant]
     Active Substance: LEVOTHYROXINE SODIUM
  22. TIZANIDINE [Concomitant]
     Active Substance: TIZANIDINE
  23. TOUJEO [Concomitant]
     Active Substance: INSULIN GLARGINE
  24. TYLENOL [Concomitant]
     Active Substance: ACETAMINOPHEN
  25. VITAMIN D3 [Concomitant]
     Active Substance: CHOLECALCIFEROL
  26. ZETIA [Concomitant]
     Active Substance: EZETIMIBE

REACTIONS (2)
  - Pain [Unknown]
  - Dry eye [Unknown]
